FAERS Safety Report 6877516-1 (Version None)
Quarter: 2010Q3

REPORT INFORMATION
  Report Type: 
  Country: None (occurrence: None)
  Receive Date: 20100727
  Receipt Date: 20091216
  Transmission Date: 20110219
  Serious: No
  Sender: FDA-Public Use
  Company Number: US-ABBOTT-09P-163-0615688-00

PATIENT
  Sex: Female
  Weight: 65.83 kg

DRUGS (5)
  1. SYNTHROID [Suspect]
     Indication: HYPOTHYROIDISM
     Route: 048
     Dates: start: 19900101
  2. ATENOLOL [Concomitant]
     Indication: HYPERTENSION
     Dates: start: 20080101
  3. LIPITOR [Concomitant]
     Indication: BLOOD CHOLESTEROL INCREASED
     Dates: end: 20091201
  4. NEXIUM [Concomitant]
     Indication: GASTROOESOPHAGEAL REFLUX DISEASE
     Dates: start: 20091214
  5. PROTONIX [Concomitant]
     Indication: GASTROOESOPHAGEAL REFLUX DISEASE
     Dates: end: 20091201

REACTIONS (5)
  - CHILLS [None]
  - FATIGUE [None]
  - SINUSITIS [None]
  - SNEEZING [None]
  - SOMNOLENCE [None]
